FAERS Safety Report 7434184-8 (Version None)
Quarter: 2011Q2

REPORT INFORMATION
  Report Type: 
  Country: None (occurrence: None)
  Receive Date: 20110425
  Receipt Date: 20110419
  Transmission Date: 20111010
  Serious: Yes (Other)
  Sender: FDA-Public Use
  Company Number: US-PFIZER INC-2011085837

PATIENT
  Sex: Female
  Weight: 77.098 kg

DRUGS (8)
  1. NORVASC [Concomitant]
     Dosage: UNK
  2. ZETIA [Concomitant]
     Dosage: UNK
  3. LIPITOR [Concomitant]
     Dosage: UNK
  4. LEVOTHYROXINE [Concomitant]
     Dosage: UNK
  5. EFFEXOR [Suspect]
     Indication: DEPRESSION
     Dosage: 50 MG, 1X/DAY
     Route: 048
     Dates: start: 20110415, end: 20110417
  6. NEXIUM [Concomitant]
     Dosage: UNK
  7. TRAZODONE [Concomitant]
     Indication: DEPRESSION
     Dosage: UNK
  8. POTASSIUM [Concomitant]
     Dosage: UNK

REACTIONS (4)
  - RASH GENERALISED [None]
  - EYE PRURITUS [None]
  - EAR PRURITUS [None]
  - OEDEMA PERIPHERAL [None]
